FAERS Safety Report 17245238 (Version 1)
Quarter: 2020Q1

REPORT INFORMATION
  Report Type: Spontaneous
  Country: US (occurrence: US)
  Receive Date: 20200108
  Receipt Date: 20200108
  Transmission Date: 20200409
  Serious: No
  Sender: FDA-Public Use
  Company Number: US-ASTRAZENECA-2019SF82748

PATIENT
  Age: 24294 Day
  Sex: Female
  Weight: 80.3 kg

DRUGS (1)
  1. BYETTA [Suspect]
     Active Substance: EXENATIDE
     Indication: TYPE 2 DIABETES MELLITUS
     Route: 058

REACTIONS (5)
  - Blood glucose increased [Unknown]
  - Device issue [Unknown]
  - Incorrect dose administered [Unknown]
  - Intentional device misuse [Unknown]
  - Intentional misuse of drug delivery system [Unknown]

NARRATIVE: CASE EVENT DATE: 20191211
